FAERS Safety Report 20527226 (Version 1)
Quarter: 2022Q1

REPORT INFORMATION
  Report Type: Spontaneous
  Country: US (occurrence: None)
  Receive Date: 20220228
  Receipt Date: 20220228
  Transmission Date: 20220423
  Serious: Yes (Other)
  Sender: FDA-Public Use
  Company Number: None

PATIENT
  Age: 78 Year
  Sex: Female
  Weight: 81.65 kg

DRUGS (12)
  1. KEPPRA [Suspect]
     Active Substance: LEVETIRACETAM
     Indication: Seizure
     Dosage: OTHER FREQUENCY : 2 UNKNOWN ;?
     Route: 048
     Dates: start: 202110, end: 202112
  2. CALCIUM [Concomitant]
     Active Substance: CALCIUM
  3. DIETARY SUPPLEMENT [Concomitant]
     Active Substance: DIETARY SUPPLEMENT
  4. ZINC [Concomitant]
     Active Substance: ZINC
  5. GARLIC [Concomitant]
     Active Substance: GARLIC
  6. MAXZIDE [Concomitant]
     Active Substance: HYDROCHLOROTHIAZIDE\TRIAMTERENE
  7. VITAMIN D3 [Concomitant]
     Active Substance: CHOLECALCIFEROL
  8. PRAVASTATIN [Concomitant]
     Active Substance: PRAVASTATIN
  9. SELENIUM [Concomitant]
     Active Substance: SELENIUM
  10. MAGNESIUM [Concomitant]
     Active Substance: MAGNESIUM
  11. LAMOTRIGINE [Concomitant]
     Active Substance: LAMOTRIGINE
  12. LISINOPRIL [Concomitant]
     Active Substance: LISINOPRIL

REACTIONS (2)
  - Fatigue [None]
  - Mood swings [None]

NARRATIVE: CASE EVENT DATE: 20211001
